FAERS Safety Report 9867669 (Version 1)
Quarter: 2014Q1

REPORT INFORMATION
  Report Type: Spontaneous
  Country: IN (occurrence: IN)
  Receive Date: 20140204
  Receipt Date: 20140204
  Transmission Date: 20141002
  Serious: Yes (Death)
  Sender: FDA-Public Use
  Company Number: PHHY2014IN012967

PATIENT
  Age: 23 Year
  Sex: Female

DRUGS (2)
  1. CICLOSPORIN [Suspect]
     Indication: APLASTIC ANAEMIA
     Dosage: 5 MG/KG, PER DAY
  2. ANDROGENS [Suspect]
     Dosage: 2 MG/KG, PER DAY

REACTIONS (2)
  - Death [Fatal]
  - Drug ineffective [Unknown]
